FAERS Safety Report 13771823 (Version 1)
Quarter: 2017Q3

REPORT INFORMATION
  Report Type: Spontaneous
  Country: US (occurrence: US)
  Receive Date: 20170720
  Receipt Date: 20170720
  Transmission Date: 20171127
  Serious: Yes (Other)
  Sender: FDA-Public Use
  Company Number: US-BRISTOL-MYERS SQUIBB COMPANY-BMS-2017-063337

PATIENT
  Age: 38 Year
  Sex: Female

DRUGS (1)
  1. NIVOLUMAB [Suspect]
     Active Substance: NIVOLUMAB
     Indication: CERVIX CARCINOMA
     Dosage: 3 MG/KG, Q2WK
     Route: 042

REACTIONS (4)
  - Borderline glaucoma [Unknown]
  - Pancytopenia [Recovering/Resolving]
  - Product use in unapproved indication [Unknown]
  - Dry eye [Unknown]
